FAERS Safety Report 18523869 (Version 1)
Quarter: 2020Q4

REPORT INFORMATION
  Report Type: Spontaneous
  Country: US (occurrence: US)
  Receive Date: 20201119
  Receipt Date: 20201119
  Transmission Date: 20210114
  Serious: No
  Sender: FDA-Public Use
  Company Number: US-JACOBUS PHARMACEUTICAL COMPANY, INC.-2096096

PATIENT
  Age: 71 Year
  Sex: Female

DRUGS (16)
  1. CRANBERRY. [Concomitant]
     Active Substance: CRANBERRY
  2. RUZURGI [Suspect]
     Active Substance: AMIFAMPRIDINE
     Indication: MYASTHENIC SYNDROME
     Route: 048
     Dates: start: 20200812
  3. ESGIC [Concomitant]
     Active Substance: ACETAMINOPHEN\BUTALBITAL\CAFFEINE
  4. PREDNISONE. [Concomitant]
     Active Substance: PREDNISONE
  5. MESTINON [Concomitant]
     Active Substance: PYRIDOSTIGMINE BROMIDE
  6. CYANOCOBALAMIN. [Concomitant]
     Active Substance: CYANOCOBALAMIN
  7. LOW DOSE ASPIRIN LOW DOSE [Concomitant]
     Active Substance: ASPIRIN
  8. SKELAXIN [Concomitant]
     Active Substance: METAXALONE
  9. PRILOSEC [Concomitant]
     Active Substance: OMEPRAZOLE MAGNESIUM
  10. WOMENS MULTIVITAMIN [Concomitant]
  11. HYDROCODONE BITARTRATE. [Concomitant]
     Active Substance: HYDROCODONE BITARTRATE
  12. ADVIL [Concomitant]
     Active Substance: IBUPROFEN
  13. IRON [Concomitant]
     Active Substance: IRON
  14. MACRODANTIN [Concomitant]
     Active Substance: NITROFURANTOIN
  15. AMITRIPTYLINE HYDROCHLORIDE. [Concomitant]
     Active Substance: AMITRIPTYLINE HYDROCHLORIDE
  16. REGLAN [Concomitant]
     Active Substance: METOCLOPRAMIDE HYDROCHLORIDE

REACTIONS (1)
  - Feeling abnormal [Unknown]
